FAERS Safety Report 4386787-5 (Version None)
Quarter: 2004Q2

REPORT INFORMATION
  Report Type: 
  Country: None (occurrence: None)
  Receive Date: 20040607
  Receipt Date: 20031010
  Transmission Date: 20050107
  Serious: Yes (Other)
  Sender: FDA-Public Use
  Company Number: 252721

PATIENT
  Age: 2 Year
  Sex: Male
  Weight: 3.9 kg

DRUGS (2)
  1. ACCUTANE [Suspect]
     Indication: ACNE
     Dosage: 40 MG 2 PER DAY ORAL
     Route: 048
     Dates: end: 20001218
  2. BIRTH CONTROL PILL (ORAL CONTRACEPTIVE NOS) [Concomitant]

REACTIONS (3)
  - ADVERSE EVENT [None]
  - JAUNDICE [None]
  - JAUNDICE NEONATAL [None]
